FAERS Safety Report 11706745 (Version 1)
Quarter: 2015Q4

REPORT INFORMATION
  Report Type: Spontaneous
  Country: US (occurrence: US)
  Receive Date: 20151106
  Receipt Date: 20151106
  Transmission Date: 20160304
  Serious: No
  Sender: FDA-Public Use
  Company Number: US-WATSON-2015-16434

PATIENT
  Age: 66 Year
  Sex: Male

DRUGS (1)
  1. ANDRODERM [Suspect]
     Active Substance: TESTOSTERONE
     Indication: PROPHYLAXIS
     Dosage: 1 DF, DAILY
     Route: 062
     Dates: start: 20150601

REACTIONS (5)
  - Libido increased [Not Recovered/Not Resolved]
  - Anxiety [Unknown]
  - Breast pain [Not Recovered/Not Resolved]
  - Nervousness [Unknown]
  - Off label use [Unknown]

NARRATIVE: CASE EVENT DATE: 20150701
